FAERS Safety Report 5879468-X (Version None)
Quarter: 2008Q3

REPORT INFORMATION
  Report Type: 
  Country: None (occurrence: None)
  Receive Date: 20080911
  Receipt Date: 20080911
  Transmission Date: 20090109
  Serious: Yes (Other)
  Sender: FDA-Public Use
  Company Number: None

PATIENT
  Age: 36 Year
  Sex: Female
  Weight: 81.6475 kg

DRUGS (2)
  1. NUVARING [Suspect]
     Indication: CONTRACEPTION
     Dosage: 1 RING MONTHLY VAG
     Route: 067
     Dates: start: 20080401, end: 20080815
  2. NUVARING [Suspect]
     Indication: MENSTRUAL CYCLE MANAGEMENT
     Dosage: 1 RING MONTHLY VAG
     Route: 067
     Dates: start: 20080401, end: 20080815

REACTIONS (4)
  - BREAST TENDERNESS [None]
  - DYSMENORRHOEA [None]
  - NIPPLE PAIN [None]
  - WEIGHT INCREASED [None]
